FAERS Safety Report 9394547 (Version 2)
Quarter: 2013Q3

REPORT INFORMATION
  Report Type: Spontaneous
  Country: FR (occurrence: FR)
  Receive Date: 20130711
  Receipt Date: 20130731
  Transmission Date: 20140515
  Serious: Yes (Hospitalization)
  Sender: FDA-Public Use
  Company Number: PHHY2013FR072003

PATIENT
  Age: 82 Year
  Sex: Male

DRUGS (14)
  1. ILARIS [Suspect]
     Dosage: 150 MG, QD
     Dates: start: 20130304, end: 20130304
  2. ILARIS [Suspect]
     Dosage: 150 MG, QD
     Dates: start: 20130321, end: 20130321
  3. ALTIM [Suspect]
     Route: 014
     Dates: start: 20130318, end: 20130318
  4. TRIATEC [Concomitant]
     Dosage: 2.5 MG, QD
  5. DOLIPRANE [Concomitant]
     Dosage: 1 DF, TID
  6. MOTILIUM [Concomitant]
     Dosage: 1 DF, TID
  7. GAVISCON [Concomitant]
     Dosage: 1 DF, TID
  8. INEXIUM [Concomitant]
     Dosage: 20 MG, QD
  9. CALTRATE VITAMINE D3 [Concomitant]
     Dosage: 2 DF, TID
  10. UVEDOSE [Concomitant]
  11. VERSATIS [Concomitant]
  12. DAIVOBET [Concomitant]
  13. CELLUVISC [Concomitant]
  14. FRESUBIN [Concomitant]

REACTIONS (2)
  - Histiocytosis haematophagic [Recovered/Resolved]
  - Cellulitis [Recovered/Resolved]
